FAERS Safety Report 10878815 (Version 1)
Quarter: 2015Q1

REPORT INFORMATION
  Report Type: Spontaneous
  Country: CH (occurrence: CH)
  Receive Date: 20150302
  Receipt Date: 20150302
  Transmission Date: 20150721
  Serious: Yes (Hospitalization)
  Sender: FDA-Public Use
  Company Number: CH-TEVA-544253ISR

PATIENT
  Age: 92 Year
  Sex: Male

DRUGS (6)
  1. SERALIN-MEPHA [Suspect]
     Active Substance: SERTRALINE HYDROCHLORIDE
     Indication: DEPRESSION
     Dosage: 50 MILLIGRAM DAILY;
     Route: 048
     Dates: start: 20150128
  2. ZYPREXA [Suspect]
     Active Substance: OLANZAPINE
     Indication: DEPRESSION
     Dosage: 5 MILLIGRAM DAILY;
     Route: 048
     Dates: start: 20150206, end: 20150211
  3. ZYPREXA [Suspect]
     Active Substance: OLANZAPINE
     Dosage: 2.5 MILLIGRAM DAILY;
     Route: 048
     Dates: start: 20150122, end: 20150205
  4. TARDYFERON [Concomitant]
     Active Substance: FERROUS SULFATE\FOLIC ACID
     Indication: IRON DEFICIENCY ANAEMIA
     Dosage: 80 MILLIGRAM DAILY; CONTINUING
     Route: 065
     Dates: start: 201406
  5. SERALIN-MEPHA [Suspect]
     Active Substance: SERTRALINE HYDROCHLORIDE
     Dosage: 25 MILLIGRAM DAILY;
     Route: 048
     Dates: start: 20150122, end: 20150127
  6. ACIDUM FOLICUM STREULI [Concomitant]
     Dosage: 5 MILLIGRAM DAILY; CONTINUING
     Route: 065
     Dates: start: 201406

REACTIONS (6)
  - Delirium [Recovered/Resolved]
  - Hallucination [Recovered/Resolved]
  - Aphasia [Recovered/Resolved]
  - Affect lability [Recovered/Resolved]
  - Restlessness [Recovered/Resolved]
  - Mood swings [Recovered/Resolved]

NARRATIVE: CASE EVENT DATE: 20150208
